FAERS Safety Report 10098900 (Version 3)
Quarter: 2014Q2

REPORT INFORMATION
  Report Type: Spontaneous
  Country: BR (occurrence: BR)
  Receive Date: 20140423
  Receipt Date: 20140520
  Transmission Date: 20141212
  Serious: Yes (Other)
  Sender: FDA-Public Use
  Company Number: BR-ELI_LILLY_AND_COMPANY-BR201404003904

PATIENT
  Sex: Male
  Weight: 91 kg

DRUGS (6)
  1. HUMULIN N [Suspect]
     Indication: TYPE 2 DIABETES MELLITUS
     Dosage: 30 IU, BID
     Route: 058
     Dates: start: 1999
  2. HUMULIN N [Suspect]
     Dosage: UNK UNK, UNKNOWN
     Route: 058
  3. HUMULIN N [Suspect]
     Dosage: 45 IU, BID
     Route: 058
     Dates: start: 2011
  4. JANUMET [Concomitant]
     Indication: DIABETES MELLITUS
     Dosage: 1000 MG, UNKNOWN
     Route: 065
  5. DIAMICRON [Concomitant]
     Indication: DIABETES MELLITUS
     Dosage: UNK, UNKNOWN
     Route: 065
  6. FENOFIBRATO [Concomitant]
     Indication: BLOOD TRIGLYCERIDES
     Dosage: UNK, UNKNOWN
     Route: 065

REACTIONS (9)
  - Bladder cancer [Recovered/Resolved]
  - Benign neoplasm of bladder [Recovered/Resolved]
  - Weight increased [Not Recovered/Not Resolved]
  - Blood glucose increased [Not Recovered/Not Resolved]
  - Gastric polyps [Recovering/Resolving]
  - Cough [Unknown]
  - Erosive oesophagitis [Unknown]
  - Gastritis [Unknown]
  - Erosive duodenitis [Unknown]
